FAERS Safety Report 9932904 (Version 1)
Quarter: 2014Q1

REPORT INFORMATION
  Report Type: Spontaneous
  Country: US (occurrence: US)
  Receive Date: 20140228
  Receipt Date: 20140228
  Transmission Date: 20141002
  Serious: No
  Sender: FDA-Public Use
  Company Number: US-GLAXOSMITHKLINE-A1038764A

PATIENT
  Sex: Female

DRUGS (2)
  1. LAMOTRIGINE [Suspect]
     Indication: BIPOLAR DISORDER
     Dosage: 100MG PER DAY
     Route: 048
     Dates: start: 20130629
  2. LOESTRIN [Suspect]
     Indication: CONTRACEPTION
     Route: 048
     Dates: start: 20130711

REACTIONS (2)
  - Metrorrhagia [Unknown]
  - Drug interaction [Unknown]
